FAERS Safety Report 9114320 (Version 1)
Quarter: 2013Q1

REPORT INFORMATION
  Report Type: Spontaneous
  Country: US (occurrence: None)
  Receive Date: 20130220
  Receipt Date: 20130220
  Transmission Date: 20140127
  Serious: No
  Sender: FDA-Public Use
  Company Number: None

PATIENT
  Age: 43 Year
  Sex: Female
  Weight: 49.9 kg

DRUGS (1)
  1. LORATADINE AND PSEUDOEPHEDRINE [Suspect]
     Indication: NASOPHARYNGITIS
     Route: 048
     Dates: start: 20130215, end: 20130215

REACTIONS (8)
  - Cold sweat [None]
  - Nausea [None]
  - Somnolence [None]
  - Dizziness [None]
  - Tremor [None]
  - Product outer packaging issue [None]
  - Product label issue [None]
  - Product substitution issue [None]
